FAERS Safety Report 10213755 (Version 1)
Quarter: 2014Q2

REPORT INFORMATION
  Report Type: Spontaneous
  Country: US (occurrence: None)
  Receive Date: 20140602
  Receipt Date: 20140602
  Transmission Date: 20141212
  Serious: No
  Sender: FDA-Public Use
  Company Number: None

PATIENT
  Age: 38 Year
  Sex: Female
  Weight: 56.7 kg

DRUGS (1)
  1. VYVANSE [Suspect]
     Indication: ATTENTION DEFICIT/HYPERACTIVITY DISORDER
     Dosage: 1 PILL ONCE DAILY?EARLY 2010-MAYBE 5 MONTHS??
     Dates: start: 2010

REACTIONS (7)
  - Vision blurred [None]
  - Night blindness [None]
  - Gastrointestinal disorder [None]
  - Nausea [None]
  - Dyspepsia [None]
  - Hypoaesthesia [None]
  - Onychomycosis [None]
